FAERS Safety Report 7961922-8 (Version None)
Quarter: 2011Q4

REPORT INFORMATION
  Report Type: 
  Country: None (occurrence: None)
  Receive Date: 20111202
  Receipt Date: 20111202
  Transmission Date: 20120403
  Serious: Yes (Other)
  Sender: FDA-Public Use
  Company Number: None

PATIENT
  Age: 43 Year
  Sex: Male
  Weight: 113.3993 kg

DRUGS (1)
  1. MELOXICAM [Suspect]
     Dosage: 15 MG TAB 1 A DAY
     Dates: start: 20110701, end: 20111101

REACTIONS (1)
  - HEPATIC STEATOSIS [None]
